FAERS Safety Report 6927995-6 (Version None)
Quarter: 2010Q3

REPORT INFORMATION
  Report Type: 
  Country: None (occurrence: None)
  Receive Date: 20100817
  Receipt Date: 20100811
  Transmission Date: 20110219
  Serious: Yes (Disabling, Other)
  Sender: FDA-Public Use
  Company Number: US-B.I. PHARMACEUTICALS,INC./RIDGEFIELD-2010-BP-08465BP

PATIENT
  Sex: Female

DRUGS (7)
  1. SPIRIVA [Suspect]
     Indication: CHRONIC OBSTRUCTIVE PULMONARY DISEASE
     Dosage: 18 MCG
     Route: 055
     Dates: start: 20100519, end: 20100718
  2. SPIRONOLACTONE [Concomitant]
     Indication: HYPERTENSION
     Dosage: 25 MG
     Route: 048
  3. TOPROL-XL [Concomitant]
     Indication: HYPERTENSION
     Dosage: 25 MG
     Route: 048
  4. SIMVASTATIN [Concomitant]
     Dosage: 20 MG
  5. COUMADIN [Concomitant]
     Dosage: 2 MG
  6. METFORMIN [Concomitant]
     Dosage: 1500 MG
  7. FOSAMAX [Concomitant]
     Dosage: 1 PER WEEK

REACTIONS (12)
  - DISCOMFORT [None]
  - DRY MOUTH [None]
  - EYE PAIN [None]
  - FATIGUE [None]
  - INSOMNIA [None]
  - LACRIMATION INCREASED [None]
  - MICTURITION URGENCY [None]
  - PAIN [None]
  - URINARY RETENTION [None]
  - URINARY TRACT DISORDER [None]
  - URINE FLOW DECREASED [None]
  - VISION BLURRED [None]
